FAERS Safety Report 5162444-2 (Version None)
Quarter: 2006Q4

REPORT INFORMATION
  Report Type: 
  Country: None (occurrence: None)
  Receive Date: 20061128
  Receipt Date: 20061128
  Transmission Date: 20070319
  Serious: Yes (Other)
  Sender: FDA-Public Use
  Company Number: None

PATIENT
  Age: 42 Year
  Sex: Male
  Weight: 57.1532 kg

DRUGS (9)
  1. HEPARIN [Suspect]
     Indication: INTRAVENOUS CATHETER MANAGEMENT
     Dosage: 1500 U - FLUSH
     Dates: start: 20060512, end: 20060516
  2. ASPIRIN [Concomitant]
  3. CAL ACETATE [Concomitant]
  4. GEMFIBROZIL [Concomitant]
  5. LISINOPRIL [Concomitant]
  6. METOPROLOL SUCCINATE [Concomitant]
  7. OMEPRAZOLE [Concomitant]
  8. SHOLS SOLN [Concomitant]
  9. SIMVASTATIN [Concomitant]

REACTIONS (1)
  - THROMBOCYTOPENIA [None]
